FAERS Safety Report 5410870-6 (Version None)
Quarter: 2007Q3

REPORT INFORMATION
  Report Type: 
  Country: None (occurrence: None)
  Receive Date: 20070810
  Receipt Date: 20070731
  Transmission Date: 20080115
  Serious: Yes (Hospitalization)
  Sender: FDA-Public Use
  Company Number: PHEH2007US06945

PATIENT
  Age: 51 Year
  Sex: Female

DRUGS (22)
  1. ZELNORM [Suspect]
     Indication: IMPAIRED GASTRIC EMPTYING
     Dosage: 6 MG, BID
     Route: 048
     Dates: start: 20061212, end: 20070412
  2. METHADOSE [Concomitant]
     Indication: PAIN
     Dosage: 10 MG, 6QD
     Dates: start: 20040810
  3. OXYCODONE HCL [Concomitant]
     Indication: PAIN
     Dosage: 5 MG, PRN
     Route: 048
     Dates: start: 20040309
  4. OXYCODONE HCL [Concomitant]
     Dosage: 10 MG, PRN
  5. OXYCODONE HCL [Concomitant]
     Dosage: 20 MG, PRN
  6. ZANAFLEX [Concomitant]
     Indication: TEMPOROMANDIBULAR JOINT SYNDROME
     Dosage: 4 MG, TID
     Route: 048
     Dates: start: 20030901
  7. PREMARIN [Concomitant]
     Indication: HOT FLUSH
     Dosage: 0.625 MG, QD
     Route: 048
  8. PREMARIN [Concomitant]
     Dosage: 1.25 MG, QD
     Route: 048
     Dates: start: 20040503
  9. VITAMIN CAP [Concomitant]
     Dosage: UNK, QD
     Route: 048
  10. CALCIUM CARBONATE [Concomitant]
     Dosage: 600 MG, TID
     Route: 048
     Dates: start: 20040611
  11. XANAX [Concomitant]
     Indication: ANXIETY
     Dosage: 0.25 MG, PRN
     Dates: start: 20061204
  12. DULCOLAX [Concomitant]
     Indication: CONSTIPATION
     Dosage: 5 MG, TID
     Route: 048
     Dates: start: 20040810
  13. SENOKOT /USA/ [Concomitant]
     Indication: CONSTIPATION
     Dosage: 8.6 MG, TID
     Route: 048
     Dates: start: 20040928
  14. MIRALAX [Concomitant]
     Dosage: 17 G, QD
     Dates: start: 20070122, end: 20070407
  15. PRILOSEC [Concomitant]
     Indication: GASTROOESOPHAGEAL REFLUX DISEASE
     Dosage: 20 MG, QD
     Route: 048
     Dates: start: 20050701
  16. INDERAL [Concomitant]
     Indication: MIGRAINE
     Dosage: 20 MG, Q6H
     Dates: start: 20040514
  17. ZOMIG [Concomitant]
     Indication: MIGRAINE
     Dosage: 5 MG, PRN
     Dates: start: 20061108
  18. ZOMIG [Concomitant]
     Dosage: 5 MG, PRN
     Route: 048
     Dates: start: 20050912
  19. ZOCOR [Concomitant]
     Indication: BLOOD CHOLESTEROL
     Dosage: 10 MG, QD
     Route: 048
     Dates: start: 20070515
  20. BENADRYL [Concomitant]
     Indication: PRURITUS
     Dosage: UNK, PRN
     Route: 048
     Dates: start: 20031114, end: 20061023
  21. PAXIL [Concomitant]
     Dosage: 20 MG, QD
     Route: 048
     Dates: start: 20070312, end: 20070324
  22. PENICILLIN V [Concomitant]
     Dosage: UNK, Q6H
     Dates: start: 20070515, end: 20070529

REACTIONS (5)
  - DIZZINESS [None]
  - FALL [None]
  - FOOT FRACTURE [None]
  - LOSS OF CONSCIOUSNESS [None]
  - VOMITING [None]
